FAERS Safety Report 4862047-0 (Version None)
Quarter: 2005Q4

REPORT INFORMATION
  Report Type: 
  Country: None (occurrence: None)
  Receive Date: 20051221
  Receipt Date: 20051212
  Transmission Date: 20060501
  Serious: Yes (Hospitalization)
  Sender: FDA-Public Use
  Company Number: US-JNJFOC-20050501972

PATIENT
  Sex: Female
  Weight: 80.29 kg

DRUGS (9)
  1. REMICADE [Suspect]
     Route: 042
  2. REMICADE [Suspect]
     Route: 042
  3. REMICADE [Suspect]
     Route: 042
  4. REMICADE [Suspect]
     Route: 042
  5. REMICADE [Suspect]
     Indication: CROHN'S DISEASE
     Route: 042
  6. IMURAN [Concomitant]
  7. ASACOL [Concomitant]
     Dates: start: 20010101, end: 20050101
  8. LEVSIN [Concomitant]
  9. IC HYOSCYAMINE SU [Concomitant]

REACTIONS (1)
  - TUBERCULOSIS [None]
